FAERS Safety Report 5613139-X (Version None)
Quarter: 2008Q1

REPORT INFORMATION
  Report Type: 
  Country: None (occurrence: None)
  Receive Date: 20080129
  Receipt Date: 20080115
  Transmission Date: 20080703
  Serious: Yes (Other)
  Sender: FDA-Public Use
  Company Number: 230087J08USA

PATIENT
  Age: 51 Year
  Sex: Female

DRUGS (11)
  1. REBIF [Suspect]
     Indication: MULTIPLE SCLEROSIS
     Dosage: 44 MCG, 3 IN 1 WEEKS, SUBCUTANEOUS
     Route: 058
     Dates: start: 20030711
  2. ZETIA [Concomitant]
  3. LIPITOR [Concomitant]
  4. IMURAN [Concomitant]
  5. NEURONTIN [Concomitant]
  6. LORAZEPAM [Concomitant]
  7. DIAZEPAM [Concomitant]
  8. WELLBUTRIN [Concomitant]
  9. NEXIUM [Concomitant]
  10. SOLU-MEDROL (MEHYLPREDNISOLONE SODIUM SUCCINATE) [Concomitant]
  11. CALCIUM (CALCIUM-SANDOZ) [Concomitant]

REACTIONS (1)
  - BASAL CELL CARCINOMA [None]
